FAERS Safety Report 6849480-2 (Version None)
Quarter: 2010Q3

REPORT INFORMATION
  Report Type: 
  Country: None (occurrence: None)
  Receive Date: 20100716
  Receipt Date: 20100709
  Transmission Date: 20110219
  Serious: Yes (Other)
  Sender: FDA-Public Use
  Company Number: JP-B.I. PHARMACEUTICALS,INC./RIDGEFIELD-2010-BP-06807NB

PATIENT
  Sex: Female
  Weight: 52.3 kg

DRUGS (12)
  1. MICARDIS [Suspect]
     Indication: HYPERTENSION
     Dosage: 40 MG
     Route: 048
     Dates: end: 20100416
  2. MUCOSOLVAN CAPSULES [Suspect]
     Indication: BRONCHITIS CHRONIC
     Dosage: 45 MG
     Route: 048
     Dates: end: 20100421
  3. GASMOTIN [Suspect]
     Indication: DECREASED APPETITE
     Dosage: 15 MG
     Route: 048
     Dates: end: 20100421
  4. HOKUNALIN: TAPE [Suspect]
     Indication: ASTHMA
     Dosage: 2 MG
     Route: 062
     Dates: start: 20100301, end: 20100421
  5. IRESSA [Concomitant]
     Indication: LUNG ADENOCARCINOMA
     Dosage: 250 MG
     Route: 048
     Dates: start: 20090804
  6. AMLODIN OD [Concomitant]
     Indication: HYPERTENSION
     Dosage: 5 MG
     Route: 048
  7. TAKEPRON [Concomitant]
     Indication: GASTRIC ULCER
     Dosage: 15 MG
     Route: 048
     Dates: start: 20090730
  8. ALLELOCK [Concomitant]
     Indication: PRURITUS
     Dosage: 10 MG
     Route: 048
     Dates: start: 20090911
  9. DEPAS [Concomitant]
     Indication: INSOMNIA
     Dosage: 1.5 MG
     Route: 048
     Dates: start: 20090703
  10. PANTOSIN [Concomitant]
     Indication: CONSTIPATION
     Dosage: 300 MG
     Route: 048
  11. MAGMITT [Concomitant]
     Indication: CONSTIPATION
     Dosage: 1500 MG
     Route: 048
  12. ALVESCO [Concomitant]
     Indication: ASTHMA
     Dosage: 200 MCG
     Route: 055
     Dates: start: 20100301

REACTIONS (6)
  - BLOOD CREATINE PHOSPHOKINASE INCREASED [None]
  - BONE NEOPLASM [None]
  - BRAIN NEOPLASM [None]
  - GASTRIC ULCER [None]
  - INSOMNIA [None]
  - PRURITUS [None]
